FAERS Safety Report 8286200-1 (Version None)
Quarter: 2012Q2

REPORT INFORMATION
  Report Type: 
  Country: None (occurrence: None)
  Receive Date: 20120416
  Receipt Date: 20120409
  Transmission Date: 20120825
  Serious: No
  Sender: FDA-Public Use
  Company Number: US-PFIZER INC-2012003539

PATIENT
  Sex: Male

DRUGS (2)
  1. PRISTIQ [Suspect]
     Dosage: 100 MG, 1X/DAY
     Dates: end: 20110103
  2. PRISTIQ [Suspect]
     Dosage: 100 MG, 3X/DAY
     Dates: start: 20110104

REACTIONS (6)
  - TREMOR [None]
  - NASOPHARYNGITIS [None]
  - DYSGEUSIA [None]
  - MALAISE [None]
  - VISION BLURRED [None]
  - SKIN ODOUR ABNORMAL [None]
